FAERS Safety Report 22332008 (Version 1)
Quarter: 2023Q2

REPORT INFORMATION
  Report Type: Report from Study
  Country: US (occurrence: US)
  Receive Date: 20230517
  Receipt Date: 20230517
  Transmission Date: 20230721
  Serious: Yes (Hospitalization, Other)
  Sender: FDA-Public Use
  Company Number: US-MYLANLABS-2023M1047380

PATIENT
  Age: 74 Year
  Sex: Male

DRUGS (24)
  1. EPLERENONE [Suspect]
     Active Substance: EPLERENONE
     Indication: Cardiac failure congestive
     Dosage: 25 MILLIGRAM, QD
     Route: 048
     Dates: start: 20220716, end: 202301
  2. METHIMAZOLE [Concomitant]
     Active Substance: METHIMAZOLE
     Indication: Hyperthyroidism
     Dosage: 20 MILLIGRAM, QD (START DATE: 20-OCT-2022)
     Route: 048
  3. TORSEMIDE [Concomitant]
     Active Substance: TORSEMIDE
     Indication: Cardiac failure congestive
     Dosage: 20 MILLIGRAM, QD (DAILY)
     Route: 048
     Dates: start: 20220614
  4. TORSEMIDE [Concomitant]
     Active Substance: TORSEMIDE
     Indication: Paracentesis
  5. ELIQUIS [Concomitant]
     Active Substance: APIXABAN
     Indication: Atrial fibrillation
     Dosage: 5 MILLIGRAM, BID (TWICE)
     Route: 048
     Dates: start: 20220131
  6. ELIQUIS [Concomitant]
     Active Substance: APIXABAN
     Indication: Thrombosis
  7. JARDIANCE [Concomitant]
     Active Substance: EMPAGLIFLOZIN
     Indication: Diabetes mellitus
     Dosage: 12.5 MILLIGRAM, QD
     Route: 048
     Dates: start: 20220131
  8. ACETAMINOPHEN [Concomitant]
     Active Substance: ACETAMINOPHEN
     Indication: Procedural pain
     Dosage: 1000 MILLIGRAM, Q6H
     Route: 048
  9. ACETAMINOPHEN [Concomitant]
     Active Substance: ACETAMINOPHEN
     Indication: Post procedural fever
  10. ALBUTEROL [Concomitant]
     Active Substance: ALBUTEROL
     Indication: Dyspnoea
     Dosage: 90 MICROGRAM, BID (AS NEEDED (PRN))
     Route: 055
  11. ALLOPURINOL [Concomitant]
     Active Substance: ALLOPURINOL
     Indication: Prophylaxis
     Dosage: 200 MILLIGRAM, QD
     Route: 048
  12. BENZONATATE [Concomitant]
     Active Substance: BENZONATATE
     Indication: Cough
     Dosage: 100 MILLIGRAM, BID (PRN)
     Route: 048
  13. COLCHICINE [Concomitant]
     Active Substance: COLCHICINE
     Indication: Gout
     Dosage: 0.6 MILLIGRAM, QOD, (EVERY OTHER DAY)
     Route: 048
  14. FERROUS SULFATE [Concomitant]
     Active Substance: FERROUS SULFATE
     Indication: Mineral supplementation
     Dosage: 5 MILLIGRAM, QD (EQUIVALENT TO 300-325 MG)
     Route: 048
  15. IPRATROPIUM [Concomitant]
     Active Substance: IPRATROPIUM
     Indication: Dyspnoea
     Dosage: 17 MICROGRAM, BID (PRN)
     Route: 055
  16. METHYLPREDNISOLONE [Concomitant]
     Active Substance: METHYLPREDNISOLONE
     Indication: Inflammation
     Dosage: 24 MILLIGRAM, QD (TAPERING DOSES- DAY 1)
     Route: 048
  17. METHYLPREDNISOLONE [Concomitant]
     Active Substance: METHYLPREDNISOLONE
     Dosage: 20 MILLIGRAM, QD (TAPERING DOSES- DAY 2)
     Route: 048
  18. METHYLPREDNISOLONE [Concomitant]
     Active Substance: METHYLPREDNISOLONE
     Dosage: 16 MILLIGRAM, QD (TAPERING DOSES- DAY 3)
     Route: 048
  19. METHYLPREDNISOLONE [Concomitant]
     Active Substance: METHYLPREDNISOLONE
     Dosage: 12 MILLIGRAM, QD (TAPERING DOSES- DAY 4)
     Route: 048
  20. METHYLPREDNISOLONE [Concomitant]
     Active Substance: METHYLPREDNISOLONE
     Dosage: 8 MILLIGRAM, QD (TAPERING DOSES- DAY 5)
     Route: 048
  21. METHYLPREDNISOLONE [Concomitant]
     Active Substance: METHYLPREDNISOLONE
     Dosage: 4 MILLIGRAM, QD (TAPERING DOSES- DAY 6)
     Route: 048
  22. OXYCODONE [Concomitant]
     Active Substance: OXYCODONE
     Indication: Procedural pain
     Dosage: 5 MILLIGRAM (6 TIMES A DAY PRN FOR 2 DAYS)
     Route: 048
  23. OXYCODONE [Concomitant]
     Active Substance: OXYCODONE
     Dosage: 5 MILLIGRAM, QID, (4 TIMES A DAY PRN FOR 2 DAYS)
     Route: 048
  24. OXYCODONE [Concomitant]
     Active Substance: OXYCODONE
     Dosage: 5 MILLIGRAM, BID (FOR 1 DAY )
     Route: 048

REACTIONS (5)
  - Arrhythmia supraventricular [Unknown]
  - Complex regional pain syndrome [Recovering/Resolving]
  - Hyperkalaemia [Recovered/Resolved]
  - Peripheral swelling [Unknown]
  - Pain in extremity [Unknown]

NARRATIVE: CASE EVENT DATE: 20221011
